FAERS Safety Report 7285300-2 (Version None)
Quarter: 2011Q1

REPORT INFORMATION
  Report Type: 
  Country: None (occurrence: None)
  Receive Date: 20110210
  Receipt Date: 20110202
  Transmission Date: 20110831
  Serious: Yes (Other)
  Sender: FDA-Public Use
  Company Number: JP-ROCHE-685842

PATIENT
  Age: 49 Year
  Sex: Female

DRUGS (12)
  1. CYCLOSPORINE [Concomitant]
     Route: 042
     Dates: start: 20081101, end: 20081101
  2. PREDNISOLONE [Concomitant]
     Dosage: 80- 85 MG PER DAY
     Dates: start: 20081101
  3. CELLCEPT [Suspect]
     Dosage: DOSE DECREASED
     Route: 048
     Dates: start: 20081101, end: 20081101
  4. CELLCEPT [Suspect]
     Route: 048
     Dates: start: 20081201
  5. PREDNISOLONE [Concomitant]
     Dates: start: 20081001, end: 20081001
  6. RITUXAN [Concomitant]
     Route: 041
     Dates: start: 20081001, end: 20081001
  7. METHYLPREDNISOLONE SODIUM PHOSPHATE [Concomitant]
     Route: 041
     Dates: start: 20081101, end: 20081101
  8. CYCLOSPORINE [Concomitant]
     Dosage: PERORAL AGENT
     Route: 042
     Dates: start: 20081001, end: 20081101
  9. TACROLIMUS [Concomitant]
     Dosage: PERORAL AGENT
     Route: 048
     Dates: start: 20081001, end: 20081001
  10. CELLCEPT [Suspect]
     Indication: PROPHYLAXIS AGAINST TRANSPLANT REJECTION
     Dosage: DOSE DECREASED
     Route: 048
     Dates: start: 20081001, end: 20081001
  11. BASILIXIMAB [Concomitant]
     Dosage: THE 0TH AND POSTSURGICAL THE FOURTH
     Route: 041
  12. TACROLIMUS [Concomitant]
     Dosage: PERORAL AGENT
     Route: 048
     Dates: start: 20081101

REACTIONS (1)
  - THROMBOCYTOPENIC PURPURA [None]
